FAERS Safety Report 18622601 (Version 1)
Quarter: 2020Q4

REPORT INFORMATION
  Report Type: Spontaneous
  Country: GB (occurrence: GB)
  Receive Date: 20201216
  Receipt Date: 20201216
  Transmission Date: 20210114
  Serious: Yes (Hospitalization)
  Sender: FDA-Public Use
  Company Number: GB-PFIZER INC-2020489309

PATIENT
  Age: 74 Year
  Sex: Male

DRUGS (1)
  1. GENOTROPIN [Suspect]
     Active Substance: SOMATROPIN
     Indication: GROWTH HORMONE DEFICIENCY
     Dosage: 0.4 MG, EVERY OTHER DAY
     Route: 058

REACTIONS (4)
  - Pain in extremity [Recovered/Resolved]
  - Dysstasia [Recovered/Resolved]
  - Hypertension [Unknown]
  - Off label use [Unknown]
